FAERS Safety Report 5744665-0 (Version None)
Quarter: 2008Q2

REPORT INFORMATION
  Report Type: 
  Country: None (occurrence: None)
  Receive Date: 20080516
  Receipt Date: 20080505
  Transmission Date: 20081010
  Serious: Yes (Other)
  Sender: FDA-Public Use
  Company Number: CHPA2007US08234

PATIENT
  Age: 50 Year
  Sex: Male
  Weight: 73.5 kg

DRUGS (2)
  1. THERAPEUTIC MINERAL ICE (NCH)(MENTHOL) GEL [Suspect]
     Indication: PAIN IN EXTREMITY
     Dosage: BID, TOPICAL
     Route: 061
     Dates: start: 20070320, end: 20070325
  2. THERAPEUTIC MINERAL ICE [Suspect]
     Dosage: TOPICAL
     Route: 061
     Dates: start: 20080504, end: 20080504

REACTIONS (2)
  - CHEMICAL BURN OF SKIN [None]
  - RASH [None]
